FAERS Safety Report 7361884-0 (Version None)
Quarter: 2011Q1

REPORT INFORMATION
  Report Type: 
  Country: None (occurrence: None)
  Receive Date: 20110315
  Receipt Date: 20110315
  Transmission Date: 20110831
  Serious: Yes (Death, Disabling)
  Sender: FDA-Public Use
  Company Number: None

PATIENT
  Sex: Male

DRUGS (1)
  1. OMNISCAN [Suspect]
     Indication: SCAN WITH CONTRAST
     Dosage: 20CC 042
     Dates: start: 20090827

REACTIONS (5)
  - DRY SKIN [None]
  - OEDEMA PERIPHERAL [None]
  - ABASIA [None]
  - SKIN DISCOLOURATION [None]
  - PAIN IN EXTREMITY [None]
